FAERS Safety Report 5659145-0 (Version None)
Quarter: 2008Q1

REPORT INFORMATION
  Report Type: 
  Country: None (occurrence: None)
  Receive Date: 20080311
  Receipt Date: 20070601
  Transmission Date: 20080703
  Serious: No
  Sender: FDA-Public Use
  Company Number: US-BAYER-200711764BCC

PATIENT
  Age: 16 Year
  Sex: Female
  Weight: 57 kg

DRUGS (2)
  1. MIDOL [Suspect]
     Indication: DRUG USE FOR UNKNOWN INDICATION
     Dosage: AS USED: 440/220/220 MG  UNIT DOSE: 220 MG
     Route: 048
     Dates: start: 20070530
  2. EFFEXOR [Concomitant]

REACTIONS (2)
  - DIARRHOEA [None]
  - NAUSEA [None]
